FAERS Safety Report 10736861 (Version 2)
Quarter: 2015Q1

REPORT INFORMATION
  Report Type: Spontaneous
  Country: US (occurrence: US)
  Receive Date: 20150126
  Receipt Date: 20150227
  Transmission Date: 20150721
  Serious: Yes (Hospitalization, Disabling, Other)
  Sender: FDA-Public Use
  Company Number: US-009507513-1107USA00012

PATIENT
  Sex: Female
  Weight: 69.84 kg

DRUGS (7)
  1. FOSAMAX [Suspect]
     Active Substance: ALENDRONATE SODIUM
     Indication: OSTEOPOROSIS
     Dosage: 10 MG, UNK
     Route: 048
     Dates: start: 200101, end: 20040825
  2. ALENDRONATE SODIUM. [Suspect]
     Active Substance: ALENDRONATE SODIUM
     Indication: OSTEOPENIA
  3. LANSOPRAZOLE. [Concomitant]
     Active Substance: LANSOPRAZOLE
     Dosage: UNK
     Dates: start: 1995, end: 200506
  4. FOSAMAX [Suspect]
     Active Substance: ALENDRONATE SODIUM
     Indication: OSTEOPENIA
     Dosage: 70 MG, QW
     Route: 048
     Dates: start: 20030124
  5. ALENDRONATE SODIUM. [Suspect]
     Active Substance: ALENDRONATE SODIUM
     Indication: OSTEOPOROSIS
     Dosage: 70 MG, UNK
     Route: 048
     Dates: start: 20080517, end: 200909
  6. HORMONES (UNSPECIFIED) [Concomitant]
     Active Substance: UNSPECIFIED INGREDIENT
     Dosage: UNK
     Dates: start: 200201, end: 201103
  7. PREVACID [Concomitant]
     Active Substance: LANSOPRAZOLE
     Dosage: UNK
     Dates: start: 1995, end: 200506

REACTIONS (19)
  - Open reduction of fracture [Recovering/Resolving]
  - Osteoporosis [Not Recovered/Not Resolved]
  - Femur fracture [Recovering/Resolving]
  - Low turnover osteopathy [Not Recovered/Not Resolved]
  - Gastrointestinal haemorrhage [Unknown]
  - Osteoarthritis [Unknown]
  - Femur fracture [Unknown]
  - Intramedullary rod insertion [Recovered/Resolved]
  - Hypercholesterolaemia [Unknown]
  - Type 2 diabetes mellitus [Unknown]
  - Femur fracture [Recovered/Resolved]
  - Stress fracture [Not Recovered/Not Resolved]
  - Radius fracture [Unknown]
  - Hypertension [Unknown]
  - Anaemia [Unknown]
  - Intramedullary rod insertion [Recovering/Resolving]
  - Ulcer [Unknown]
  - Vitamin D deficiency [Unknown]
  - Fall [Unknown]

NARRATIVE: CASE EVENT DATE: 200201
